FAERS Safety Report 4324631-2 (Version None)
Quarter: 2004Q1

REPORT INFORMATION
  Report Type: 
  Country: None (occurrence: None)
  Receive Date: 20040323
  Receipt Date: 20040315
  Transmission Date: 20041129
  Serious: Yes (Death, Hospitalization)
  Sender: FDA-Public Use
  Company Number: GBWYE591418FEB04

PATIENT
  Sex: Female

DRUGS (2)
  1. EFFEXOR [Suspect]
     Indication: DEPRESSION
     Dosage: ORAL
     Route: 048
     Dates: start: 20031101, end: 20031201
  2. BROMAZEPAM (BROMAZEPAM) [Concomitant]

REACTIONS (9)
  - CONDITION AGGRAVATED [None]
  - COUGH [None]
  - DYSPNOEA [None]
  - NEUTROPENIA [None]
  - PNEUMONIA [None]
  - PULMONARY FIBROSIS [None]
  - RENAL FAILURE [None]
  - SEPTIC SHOCK [None]
  - SOMNOLENCE [None]
